FAERS Safety Report 17437385 (Version 1)
Quarter: 2020Q1

REPORT INFORMATION
  Report Type: Spontaneous
  Country: RU (occurrence: RU)
  Receive Date: 20200219
  Receipt Date: 20200219
  Transmission Date: 20200409
  Serious: No
  Sender: FDA-Public Use
  Company Number: RU-B.BRAUN MEDICAL INC.-2080685

PATIENT
  Age: 51 Year
  Sex: Male
  Weight: 108 kg

DRUGS (11)
  1. HEPARIN SODIUM. [Concomitant]
     Active Substance: HEPARIN SODIUM
     Route: 030
     Dates: start: 20190813, end: 20190813
  2. BISMUTHATE TRIPOTASSIUM DICITRATE [Concomitant]
     Dates: start: 20190813, end: 20190813
  3. SODIUM CHLORIDE INJECTION USP 0264-7800-09 [Suspect]
     Active Substance: SODIUM CHLORIDE
     Indication: GASTRITIS
     Route: 040
     Dates: start: 20190814, end: 20190814
  4. NEXIUM [Suspect]
     Active Substance: ESOMEPRAZOLE MAGNESIUM
     Route: 040
     Dates: start: 20190814, end: 20190814
  5. OMNIPAQUE [Concomitant]
     Active Substance: IOHEXOL
     Route: 013
     Dates: start: 20190813, end: 20190813
  6. CLOPIDOGREL [Concomitant]
     Active Substance: CLOPIDOGREL BISULFATE
     Route: 048
     Dates: start: 20190813, end: 20190813
  7. ACETYLSALICYLIC ACID [Concomitant]
     Active Substance: ASPIRIN
     Dates: start: 20190813, end: 201908
  8. ATORVASTATIN CALCIUM. [Concomitant]
     Active Substance: ATORVASTATIN CALCIUM
     Route: 048
     Dates: start: 20190813, end: 201908
  9. METOPROLOL. [Concomitant]
     Active Substance: METOPROLOL
     Route: 048
     Dates: start: 20190813, end: 201908
  10. PANTOPROZOLE [Concomitant]
     Active Substance: PANTOPRAZOLE SODIUM
     Route: 048
     Dates: start: 20190813, end: 201908
  11. SODIUM CHLORIDE SOLUTION COMPLEX [POTASSIUM CHLORIDE=CALCIUM CHLORIDE= [Concomitant]
     Route: 041
     Dates: start: 20190813, end: 20190813

REACTIONS (1)
  - Urticaria [Recovered/Resolved]

NARRATIVE: CASE EVENT DATE: 20190814
